FAERS Safety Report 5626958-0 (Version None)
Quarter: 2008Q1

REPORT INFORMATION
  Report Type: 
  Country: None (occurrence: None)
  Receive Date: 20080212
  Receipt Date: 20080129
  Transmission Date: 20080703
  Serious: Yes (Hospitalization)
  Sender: FDA-Public Use
  Company Number: WAES 0801DNK00014

PATIENT
  Age: 77 Year
  Sex: Female

DRUGS (7)
  1. CAP ZOLINZA (VORINOSTAT) [Suspect]
     Indication: OVARIAN EPITHELIAL CANCER RECURRENT
     Dosage: 100 MG/DAILY PO
     Route: 048
     Dates: start: 20080118, end: 20080128
  2. CARBOPLATIN [Suspect]
     Indication: OVARIAN EPITHELIAL CANCER RECURRENT
     Dosage: 425 MG IV
     Route: 042
     Dates: start: 20080122, end: 20080122
  3. PACLITAXEL [Suspect]
     Indication: OVARIAN EPITHELIAL CANCER RECURRENT
     Dosage: 300 MG IV
     Route: 042
     Dates: start: 20080122, end: 20080122
  4. MG OXIDE [Concomitant]
  5. METOCLOPRAMIDE HYDROCHLORIDE [Concomitant]
  6. ONDANSETRON HYDROCHLORIDE [Concomitant]
  7. PREDNISOLONE [Concomitant]

REACTIONS (13)
  - BLOOD THYROID STIMULATING HORMONE INCREASED [None]
  - CEREBRAL ATROPHY [None]
  - CONSTIPATION [None]
  - DEHYDRATION [None]
  - DIZZINESS [None]
  - DYSPNOEA [None]
  - FIBRIN D DIMER INCREASED [None]
  - HYPERMAGNESAEMIA [None]
  - NAUSEA [None]
  - ORAL FUNGAL INFECTION [None]
  - SYNCOPE [None]
  - THROMBOCYTOPENIA [None]
  - VOMITING [None]
